FAERS Safety Report 8501649 (Version 2)
Quarter: 2013Q2

REPORT INFORMATION
  Report Type: Spontaneous
  Country: US (occurrence: US)
  Receive Date: 20120410
  Receipt Date: 20130527
  Transmission Date: 20140414
  Serious: Yes (Other)
  Sender: FDA-Public Use
  Company Number: US-PFIZER INC-2012086709

PATIENT
  Sex: Female
  Weight: 64.4 kg

DRUGS (6)
  1. PREMARIN [Suspect]
     Indication: HORMONE REPLACEMENT THERAPY
     Dosage: 0.625 MG, DAILY
     Dates: start: 1989, end: 2005
  2. PREMARIN [Suspect]
     Indication: ENDOMETRIOSIS
     Dosage: 0.625 MG, DAILY
     Dates: start: 2005
  3. PREMARIN [Suspect]
     Indication: MENSTRUAL DISORDER
  4. PROVERA [Suspect]
     Indication: HORMONE REPLACEMENT THERAPY
     Dosage: 2.5 MG, DAILY
     Dates: start: 1989, end: 2005
  5. PROVERA [Suspect]
     Indication: ENDOMETRIOSIS
     Dosage: 2.5 MG, DAILY
     Dates: start: 2005
  6. PROVERA [Suspect]
     Indication: MENSTRUAL DISORDER

REACTIONS (2)
  - Foot deformity [Unknown]
  - Bunion [Unknown]
